FAERS Safety Report 23982608 (Version 2)
Quarter: 2024Q3

REPORT INFORMATION
  Report Type: Spontaneous
  Country: US (occurrence: US)
  Receive Date: 20240617
  Receipt Date: 20240801
  Transmission Date: 20241017
  Serious: No
  Sender: PFIZER
  Company Number: US-PFIZER INC-202400193233

PATIENT
  Age: 66 Year
  Sex: Female

DRUGS (2)
  1. IBRANCE [Suspect]
     Active Substance: PALBOCICLIB
     Dosage: 125 MG, CYCLIC (TAKE 1 CAPSULE DAILY FOR 21 DAYS THEN 7 DAYS OFF FOR A 28 DAYS CYCLE)
     Dates: start: 20240531, end: 20240618
  2. IBRANCE [Suspect]
     Active Substance: PALBOCICLIB
     Dosage: 100 MG, CYCLIC
     Dates: start: 20240709

REACTIONS (3)
  - Malaise [Recovering/Resolving]
  - Neutrophil count decreased [Not Recovered/Not Resolved]
  - Illness [Not Recovered/Not Resolved]
